FAERS Safety Report 12834027 (Version 2)
Quarter: 2018Q3

REPORT INFORMATION
  Report Type: Spontaneous
  Country: GB (occurrence: GB)
  Receive Date: 20161010
  Receipt Date: 20180813
  Transmission Date: 20181010
  Serious: Yes (Death, Hospitalization, Other)
  Sender: FDA-Public Use
  Company Number: GB-TEVA-699719ACC

PATIENT
  Age: 60 Year
  Sex: Female

DRUGS (9)
  1. PHENOBARBITAL SODIUM. [Concomitant]
     Active Substance: PHENOBARBITAL SODIUM
  2. SELENIUM [Concomitant]
     Active Substance: SELENIUM
  3. LAMOTRIGINE. [Suspect]
     Active Substance: LAMOTRIGINE
     Dosage: UNK
     Route: 048
     Dates: start: 2010
  4. ANDREWS LIVER SALTS [Concomitant]
     Active Substance: ANHYDROUS CITRIC ACID\BICARBONATE ION\MAGNESIUM CATION
  5. DILANTIN [Concomitant]
     Active Substance: PHENYTOIN
  6. LAMOTRIGINE. [Suspect]
     Active Substance: LAMOTRIGINE
     Indication: PRODUCT USED FOR UNKNOWN INDICATION
     Dosage: UNK UNK, BID
     Dates: start: 20160824
  7. EPILIM [Concomitant]
     Active Substance: VALPROATE SODIUM
  8. KEPPRA [Concomitant]
     Active Substance: LEVETIRACETAM
  9. ZINC. [Concomitant]
     Active Substance: ZINC

REACTIONS (15)
  - Swollen tongue [Fatal]
  - Oesophageal disorder [Fatal]
  - Seizure [Fatal]
  - Ill-defined disorder [Fatal]
  - Throat lesion [Unknown]
  - Seizure [Unknown]
  - Tongue discolouration [Fatal]
  - Epilepsy [Unknown]
  - Confusional state [Fatal]
  - Loss of consciousness [Fatal]
  - Amnesia [Fatal]
  - Death [Fatal]
  - Pallor [Unknown]
  - Pallor [Fatal]
  - Throat lesion [Fatal]

NARRATIVE: CASE EVENT DATE: 2010
